FAERS Safety Report 6758931-3 (Version None)
Quarter: 2010Q2

REPORT INFORMATION
  Report Type: 
  Country: None (occurrence: None)
  Receive Date: 20100607
  Receipt Date: 20100505
  Transmission Date: 20101027
  Serious: No
  Sender: FDA-Public Use
  Company Number: US-BAYER-201010774BCC

PATIENT
  Age: 51 Year
  Sex: Male
  Weight: 77 kg

DRUGS (4)
  1. ALEVE [Suspect]
     Indication: HEADACHE
     Dosage: TOTAL DAILY DOSE: 440 MG  UNIT DOSE: 220 MG
     Route: 048
     Dates: start: 20100110, end: 20100110
  2. ALEVE [Suspect]
     Dosage: TOTAL DAILY DOSE: 440 MG  UNIT DOSE: 220 MG
     Route: 048
     Dates: start: 20100112, end: 20100114
  3. PAXIL [Concomitant]
     Route: 065
  4. KLONOPIN [Concomitant]
     Route: 065

REACTIONS (1)
  - DYSPEPSIA [None]
